FAERS Safety Report 8852859 (Version 1)
Quarter: 2012Q4

REPORT INFORMATION
  Report Type: 
  Country: US (occurrence: US)
  Receive Date: 20121022
  Receipt Date: 20121022
  Transmission Date: 20130627
  Serious: No
  Sender: FDA-Public Use
  Company Number: US-ASTRAZENECA-2012SE77731

PATIENT
  Sex: Female

DRUGS (2)
  1. NEXIUM [Suspect]
     Indication: PEPTIC ULCER
     Route: 048
     Dates: start: 20121009
  2. ADVIL [Concomitant]
     Indication: ARTHRITIS

REACTIONS (4)
  - Feeling abnormal [Recovering/Resolving]
  - Adverse event [Unknown]
  - Headache [Recovering/Resolving]
  - Off label use [Unknown]
